FAERS Safety Report 23462375 (Version 1)
Quarter: 2024Q1

REPORT INFORMATION
  Report Type: Spontaneous
  Country: US (occurrence: US)
  Receive Date: 20240131
  Receipt Date: 20240131
  Transmission Date: 20240410
  Serious: No
  Sender: FDA-Public Use
  Company Number: PAD-2024-000181

PATIENT

DRUGS (1)
  1. ECONAZOLE NITRATE [Suspect]
     Active Substance: ECONAZOLE NITRATE
     Indication: Fungal foot infection
     Dosage: UNK, UNK
     Route: 065

REACTIONS (3)
  - Lacrimation increased [Unknown]
  - Ocular hyperaemia [Unknown]
  - Erythema [Unknown]

NARRATIVE: CASE EVENT DATE: 20240101
